FAERS Safety Report 5571122-7 (Version None)
Quarter: 2007Q4

REPORT INFORMATION
  Report Type: 
  Country: None (occurrence: None)
  Receive Date: 20071221
  Receipt Date: 20071217
  Transmission Date: 20080405
  Serious: Yes (Hospitalization)
  Sender: FDA-Public Use
  Company Number: CG-MERCK-0712USA07993

PATIENT
  Age: 51 Year
  Sex: Male

DRUGS (1)
  1. MECTIZAN [Suspect]
     Indication: ONCHOCERCIASIS
     Route: 048
     Dates: start: 20071127

REACTIONS (7)
  - ARTHRALGIA [None]
  - ASTHENIA [None]
  - CHILLS [None]
  - CONJUNCTIVAL HAEMORRHAGE [None]
  - HEADACHE [None]
  - PYREXIA [None]
  - URINARY INCONTINENCE [None]
